FAERS Safety Report 14308472 (Version 7)
Quarter: 2018Q2

REPORT INFORMATION
  Report Type: Report from Study
  Country: US (occurrence: US)
  Receive Date: 20171220
  Receipt Date: 20180621
  Transmission Date: 20180711
  Serious: Yes (Other)
  Sender: FDA-Public Use
  Company Number: US-INCYTE CORPORATION-2017IN010765

PATIENT

DRUGS (27)
  1. AMLODIPINE [Concomitant]
     Active Substance: AMLODIPINE BESYLATE
     Indication: PRODUCT USED FOR UNKNOWN INDICATION
     Route: 065
  2. JAKAFI [Suspect]
     Active Substance: RUXOLITINIB
     Indication: POLYCYTHAEMIA VERA
     Dosage: 15 MG, BID
     Route: 048
     Dates: start: 20171026
  3. JAKAFI [Suspect]
     Active Substance: RUXOLITINIB
     Dosage: 15 MG, BID
     Route: 048
     Dates: start: 201711
  4. CLOPIDOGREL [Concomitant]
     Active Substance: CLOPIDOGREL BISULFATE
     Indication: PRODUCT USED FOR UNKNOWN INDICATION
     Route: 065
  5. EZETIMIBE. [Concomitant]
     Active Substance: EZETIMIBE
     Indication: PRODUCT USED FOR UNKNOWN INDICATION
     Route: 065
  6. CLONAZEPAM. [Concomitant]
     Active Substance: CLONAZEPAM
     Indication: SEIZURE
     Dosage: 1 MG, QD
     Route: 065
     Dates: start: 2009
  7. VITAMIN D3 [Concomitant]
     Active Substance: CHOLECALCIFEROL
     Indication: PRODUCT USED FOR UNKNOWN INDICATION
     Route: 065
  8. HYDREA [Concomitant]
     Active Substance: HYDROXYUREA
     Dosage: 500 MG, 5 DAYS A WEEK
     Dates: start: 20161116, end: 20170103
  9. HYDREA [Concomitant]
     Active Substance: HYDROXYUREA
     Dosage: 500 MG, 4 TIMES PER WEEK
     Dates: start: 20170104, end: 20170228
  10. HYDROXYUREA. [Concomitant]
     Active Substance: HYDROXYUREA
     Dosage: 500 MG, ONCE DAILY 5 DAYS A WEEK
     Dates: start: 20150824, end: 20151115
  11. TAMSULOSIN [Concomitant]
     Active Substance: TAMSULOSIN
     Indication: PRODUCT USED FOR UNKNOWN INDICATION
     Route: 065
  12. LOVENOX [Concomitant]
     Active Substance: ENOXAPARIN SODIUM
     Indication: VENOUS THROMBOSIS
     Dosage: 60 MG, BID
     Route: 065
     Dates: start: 200906
  13. HYDREA [Concomitant]
     Active Substance: HYDROXYUREA
     Dosage: 500 MG, 4 TIMES PER WEEK
     Dates: start: 20161024, end: 20161115
  14. METOPROLOL. [Concomitant]
     Active Substance: METOPROLOL
     Indication: PRODUCT USED FOR UNKNOWN INDICATION
     Route: 065
  15. AZITHROMYCIN ANHYDROUS. [Concomitant]
     Active Substance: AZITHROMYCIN ANHYDROUS
     Indication: UPPER RESPIRATORY TRACT INFECTION
     Dosage: 1 G, ONCE
     Dates: start: 20160519, end: 20160519
  16. HYDREA [Concomitant]
     Active Substance: HYDROXYUREA
     Indication: POLYCYTHAEMIA VERA
     Dosage: 500 MG, QD
     Dates: start: 20151116, end: 20161023
  17. HYDREA [Concomitant]
     Active Substance: HYDROXYUREA
     Dosage: 500 MG, QD
     Dates: start: 20170301, end: 20170709
  18. JAKAFI [Suspect]
     Active Substance: RUXOLITINIB
     Dosage: 10 MG, BID
     Route: 065
  19. TAMULOSIN [Concomitant]
     Active Substance: TAMSULOSIN
     Indication: PRODUCT USED FOR UNKNOWN INDICATION
     Route: 065
  20. HYDROXYUREA. [Concomitant]
     Active Substance: HYDROXYUREA
     Indication: POLYCYTHAEMIA VERA
     Dosage: 500 MG, 4 TIMES PER WEEK
     Route: 065
     Dates: start: 20150116, end: 20150505
  21. HYDROXYUREA. [Concomitant]
     Active Substance: HYDROXYUREA
     Dosage: 500 MG, QD
     Dates: start: 20150520, end: 20150823
  22. ASPIRIN                            /00002701/ [Concomitant]
     Active Substance: ASPIRIN
     Indication: POLYCYTHAEMIA VERA
     Dosage: 81 MG, QOD
     Route: 048
     Dates: start: 2009
  23. HYDREA [Concomitant]
     Active Substance: HYDROXYUREA
     Dosage: 500 MG, 6 OF 7 DAYS
     Dates: start: 20170710, end: 20171025
  24. HYDROXYUREA. [Concomitant]
     Active Substance: HYDROXYUREA
     Dosage: 1000 MG, 2 TIMES PER WEEK
     Dates: start: 20150105, end: 20150505
  25. JAKAFI [Suspect]
     Active Substance: RUXOLITINIB
     Dosage: 10 MG, BID
     Route: 048
     Dates: start: 201712
  26. PAROXETINE. [Concomitant]
     Active Substance: PAROXETINE
     Indication: DEPRESSION
     Dosage: 10 MG, QD
     Route: 065
     Dates: start: 20100521
  27. ENOXAPARIN [Concomitant]
     Active Substance: ENOXAPARIN
     Indication: PRODUCT USED FOR UNKNOWN INDICATION
     Route: 065

REACTIONS (18)
  - Myelofibrosis [Unknown]
  - Joint swelling [Recovering/Resolving]
  - Arthritis [Recovering/Resolving]
  - Pain in extremity [Unknown]
  - Peripheral swelling [Recovered/Resolved]
  - Infection [Recovering/Resolving]
  - Platelet count decreased [Recovering/Resolving]
  - Asthenia [Recovering/Resolving]
  - Scab [Recovering/Resolving]
  - Pruritus [Recovered/Resolved]
  - Haematocrit decreased [Unknown]
  - Diarrhoea [Recovered/Resolved]
  - Anaemia [Recovering/Resolving]
  - Splenomegaly [Recovered/Resolved]
  - Muscular weakness [Unknown]
  - White blood cell count increased [Unknown]
  - Weight decreased [Recovering/Resolving]
  - Skin lesion [Recovering/Resolving]

NARRATIVE: CASE EVENT DATE: 20171113
